FAERS Safety Report 5023639-1 (Version None)
Quarter: 2006Q2

REPORT INFORMATION
  Report Type: 
  Country: None (occurrence: None)
  Receive Date: 20060606
  Receipt Date: 20060511
  Transmission Date: 20061013
  Serious: Yes (Other)
  Sender: FDA-Public Use
  Company Number: DE200604003733

PATIENT
  Age: 32 Year
  Sex: Male
  Weight: 83 kg

DRUGS (3)
  1. ZYPREXA [Suspect]
     Indication: SCHIZOPHRENIA
     Dosage: 25 MG, DAILY (1/D)
     Dates: start: 20051129, end: 20060202
  2. ABILIFY [Concomitant]
  3. STANGYL (TRIMIPRAMINE MALEATE) [Concomitant]

REACTIONS (8)
  - ALANINE AMINOTRANSFERASE INCREASED [None]
  - ASPARTATE AMINOTRANSFERASE INCREASED [None]
  - ASPARTATE AMINOTRANSFERASE NORMAL [None]
  - BLOOD CHOLESTEROL INCREASED [None]
  - BLOOD TRIGLYCERIDES INCREASED [None]
  - GAMMA-GLUTAMYLTRANSFERASE INCREASED [None]
  - HYPOTHYROIDISM [None]
  - METABOLIC SYNDROME [None]
